FAERS Safety Report 9938067 (Version 1)
Quarter: 2014Q1

REPORT INFORMATION
  Report Type: Report from Study
  Country: US (occurrence: US)
  Receive Date: 20140303
  Receipt Date: 20140303
  Transmission Date: 20141002
  Serious: Yes (Other)
  Sender: FDA-Public Use
  Company Number: US-ROCHE-1354379

PATIENT
  Sex: Female
  Weight: 86.71 kg

DRUGS (2)
  1. ACTEMRA [Suspect]
     Indication: RHEUMATOID ARTHRITIS
     Route: 042
     Dates: start: 20140127
  2. METHOTREXATE [Concomitant]
     Route: 048

REACTIONS (5)
  - Palpitations [Recovered/Resolved]
  - Dyspnoea [Unknown]
  - Chest discomfort [Unknown]
  - Feeling abnormal [Unknown]
  - Osteochondritis [Unknown]
